FAERS Safety Report 16754684 (Version 1)
Quarter: 2019Q3

REPORT INFORMATION
  Report Type: Spontaneous
  Country: US (occurrence: US)
  Receive Date: 20190710
  Receipt Date: 20190710
  Transmission Date: 20191005
  Serious: No
  Sender: FDA-Public Use
  Company Number: None

PATIENT
  Age: 68 Year
  Sex: Female
  Weight: 75.9 kg

DRUGS (6)
  1. COUMADIN [Concomitant]
     Active Substance: WARFARIN SODIUM
  2. TEMODAR [Concomitant]
     Active Substance: TEMOZOLOMIDE
  3. NUVIGIL [Suspect]
     Active Substance: ARMODAFINIL
     Dates: end: 20140101
  4. DEXAMETHASONE. [Concomitant]
     Active Substance: DEXAMETHASONE
  5. METFORMIN [Concomitant]
     Active Substance: METFORMIN HYDROCHLORIDE
  6. TRANSDERM SCOPALAMINE [Concomitant]

REACTIONS (7)
  - Cerebral infarction [None]
  - Muscular weakness [None]
  - Glioblastoma [None]
  - Fall [None]
  - Peritumoural oedema [None]
  - Oedema [None]
  - Haemorrhage intracranial [None]

NARRATIVE: CASE EVENT DATE: 20141101
